FAERS Safety Report 7463963-6 (Version None)
Quarter: 2011Q2

REPORT INFORMATION
  Report Type: 
  Country: None (occurrence: None)
  Receive Date: 20110506
  Receipt Date: 20110427
  Transmission Date: 20111010
  Serious: Yes (Hospitalization)
  Sender: FDA-Public Use
  Company Number: GB-ALLERGAN-1103438US

PATIENT
  Age: 70 Year
  Sex: Male

DRUGS (8)
  1. ASPIRIN [Concomitant]
  2. OZURDEX [Suspect]
     Indication: RETINAL VEIN OCCLUSION
     Dosage: UNK
     Route: 031
     Dates: start: 20110309, end: 20110309
  3. BECLOMETHASONE [Concomitant]
  4. ALBUTEROL SULFATE AUTOHALER [Concomitant]
  5. FUROSEMIDE [Concomitant]
  6. SALMETEROL [Concomitant]
  7. WARFARIN [Concomitant]
  8. NITROGLYCERIN [Concomitant]

REACTIONS (5)
  - CIRCULATORY COLLAPSE [None]
  - PROCEDURAL PAIN [None]
  - SYNCOPE [None]
  - RESPIRATORY ARREST [None]
  - CHEST PAIN [None]
